FAERS Safety Report 7007754-9 (Version None)
Quarter: 2010Q3

REPORT INFORMATION
  Report Type: 
  Country: None (occurrence: None)
  Receive Date: 20100920
  Receipt Date: 20100913
  Transmission Date: 20110219
  Serious: Yes (Death)
  Sender: FDA-Public Use
  Company Number: 2010SP048988

PATIENT
  Age: 64 Year
  Sex: Female

DRUGS (3)
  1. TEMODAL [Suspect]
     Indication: GLIOBLASTOMA MULTIFORME
     Dosage: 140 MG;, 280 MG; QD;, 340 MG; QD;
     Dates: start: 20090715, end: 20090825
  2. TEMODAL [Suspect]
     Indication: GLIOBLASTOMA MULTIFORME
     Dosage: 140 MG;, 280 MG; QD;, 340 MG; QD;
     Dates: start: 20090923, end: 20090927
  3. TEMODAL [Suspect]
     Indication: GLIOBLASTOMA MULTIFORME
     Dosage: 140 MG;, 280 MG; QD;, 340 MG; QD;
     Dates: start: 20091103, end: 20091106

REACTIONS (16)
  - BLOOD ALBUMIN DECREASED [None]
  - CONVULSION [None]
  - DISORIENTATION [None]
  - DYSPNOEA [None]
  - ELECTROLYTE DEPLETION [None]
  - FEELING ABNORMAL [None]
  - GENERAL PHYSICAL HEALTH DETERIORATION [None]
  - HYPOCAPNIA [None]
  - HYPOXIA [None]
  - MENTAL DISORDER [None]
  - PANCYTOPENIA [None]
  - PROTEIN TOTAL DECREASED [None]
  - PYREXIA [None]
  - REFUSAL OF TREATMENT BY RELATIVE [None]
  - RESPIRATORY RATE INCREASED [None]
  - SUPRAVENTRICULAR TACHYCARDIA [None]
